FAERS Safety Report 11536612 (Version 1)
Quarter: 2015Q3

REPORT INFORMATION
  Report Type: Spontaneous
  Country: US (occurrence: None)
  Receive Date: 20150921
  Receipt Date: 20150921
  Transmission Date: 20151125
  Serious: Yes (Disabling)
  Sender: FDA-Public Use
  Company Number: None

PATIENT
  Age: 84 Year
  Sex: Female

DRUGS (16)
  1. LECITHIN [Concomitant]
     Active Substance: LECITHIN
  2. PANTOPRAZOLE [Concomitant]
     Active Substance: PANTOPRAZOLE SODIUM
  3. VITAMIN E [Concomitant]
     Active Substance: .ALPHA.-TOCOPHEROL
  4. AVASTIN [Suspect]
     Active Substance: BEVACIZUMAB
     Indication: MACULAR OEDEMA
     Dosage: INTRAVITREAL
  5. VITAMIN B [Concomitant]
     Active Substance: VITAMIN B
  6. LASIX [Concomitant]
     Active Substance: FUROSEMIDE
  7. NITROSTAT [Concomitant]
     Active Substance: NITROGLYCERIN
  8. ESTER C DAILY [Concomitant]
  9. MULTIVITAMIN [Concomitant]
     Active Substance: VITAMINS
  10. METOPROLOL [Concomitant]
     Active Substance: METOPROLOL
  11. CALCIUM [Concomitant]
     Active Substance: CALCIUM
  12. COENZYME Q10 [Concomitant]
     Active Substance: UBIDECARENONE
  13. ILEVRO [Concomitant]
     Active Substance: NEPAFENAC
  14. REFRESH TEARS [Concomitant]
     Active Substance: CARBOXYMETHYLCELLULOSE SODIUM
  15. ASPIRIN. [Concomitant]
     Active Substance: ASPIRIN
  16. FISH OIL [Concomitant]
     Active Substance: FISH OIL

REACTIONS (1)
  - Cerebrovascular accident [None]

NARRATIVE: CASE EVENT DATE: 20150625
